FAERS Safety Report 24639415 (Version 2)
Quarter: 2025Q1

REPORT INFORMATION
  Report Type: Report from Study
  Country: KR (occurrence: KR)
  Receive Date: 20241119
  Receipt Date: 20250317
  Transmission Date: 20250409
  Serious: Yes (Hospitalization)
  Sender: ALEXION PHARMACEUTICALS
  Company Number: KR-AstraZeneca-CH-00745916A

PATIENT

DRUGS (1)
  1. OSIMERTINIB [Suspect]
     Active Substance: OSIMERTINIB
     Indication: Metastases to lymph nodes
     Dosage: UNK, QD

REACTIONS (5)
  - Epicondylitis [Recovered/Resolved]
  - Arthritis [Recovered/Resolved]
  - Lip pain [Recovered/Resolved]
  - Glossodynia [Recovered/Resolved]
  - Dry mouth [Not Recovered/Not Resolved]
